FAERS Safety Report 22115980 (Version 1)
Quarter: 2023Q1

REPORT INFORMATION
  Report Type: Spontaneous
  Country: US (occurrence: None)
  Receive Date: 20230319
  Receipt Date: 20230319
  Transmission Date: 20230417
  Serious: No
  Sender: FDA-Public Use
  Company Number: None

PATIENT
  Age: 28 Year
  Sex: Female
  Weight: 65.25 kg

DRUGS (15)
  1. MONTELUKAST SODIUM [Suspect]
     Active Substance: MONTELUKAST SODIUM
     Indication: Hypersensitivity
     Dosage: OTHER QUANTITY : 1 TABLET(S);?FREQUENCY : AT BEDTIME;?
     Route: 048
     Dates: start: 20230215, end: 20230313
  2. MONTELUKAST SODIUM [Suspect]
     Active Substance: MONTELUKAST SODIUM
     Indication: Asthma
  3. MONTELUKAST SODIUM [Suspect]
     Active Substance: MONTELUKAST SODIUM
     Indication: Mast cell activation syndrome
  4. LEVOTHYROXINE [Concomitant]
     Active Substance: LEVOTHYROXINE
  5. ADDERALL [Concomitant]
     Active Substance: AMPHETAMINE ASPARTATE\AMPHETAMINE SULFATE\DEXTROAMPHETAMINE SACCHARATE\DEXTROAMPHETAMINE SULFATE
  6. ALLEGRA [Concomitant]
     Active Substance: FEXOFENADINE HYDROCHLORIDE
  7. ELETRIPTAN [Concomitant]
     Active Substance: ELETRIPTAN
  8. NUVARING [Concomitant]
     Active Substance: ETHINYL ESTRADIOL\ETONOGESTREL
  9. TIZANIDINE [Concomitant]
     Active Substance: TIZANIDINE
  10. MAGNESIUM THREONATE [Concomitant]
  11. DAO SUPPLEMENT [Concomitant]
  12. QUERCETIN [Concomitant]
     Active Substance: QUERCETIN
  13. VITAMIN B12 [Concomitant]
     Active Substance: CYANOCOBALAMIN
  14. FOLATE SODIUM [Concomitant]
     Active Substance: FOLATE SODIUM
  15. VITAMIN C [Concomitant]
     Active Substance: ASCORBIC ACID

REACTIONS (24)
  - Mental disorder [None]
  - Nightmare [None]
  - Hallucination, visual [None]
  - Fear [None]
  - Tension headache [None]
  - Neck pain [None]
  - Arthralgia [None]
  - Musculoskeletal chest pain [None]
  - Fatigue [None]
  - Peripheral swelling [None]
  - Peripheral swelling [None]
  - Abnormal dreams [None]
  - Panic attack [None]
  - Sleep paralysis [None]
  - Disorientation [None]
  - General physical health deterioration [None]
  - Tremor [None]
  - Hyperhidrosis [None]
  - Anxiety [None]
  - Feeling abnormal [None]
  - Hallucination, tactile [None]
  - Intentional product use issue [None]
  - Anxiety [None]
  - Therapy cessation [None]

NARRATIVE: CASE EVENT DATE: 20230312
